FAERS Safety Report 9278997 (Version 2)
Quarter: 2013Q2

REPORT INFORMATION
  Report Type: Spontaneous
  Country: US (occurrence: None)
  Receive Date: 20130503
  Receipt Date: 20130520
  Transmission Date: 20140414
  Serious: Yes (Death)
  Sender: FDA-Public Use
  Company Number: 1682902

PATIENT
  Age: 91 Year
  Sex: Female

DRUGS (7)
  1. SODIUM CHLORIDE [Suspect]
     Indication: INFECTION
  2. POLYMYXIN [Suspect]
     Indication: INFECTION
  3. XANAX [Concomitant]
  4. CALAN [Concomitant]
  5. LIPID MODIFYING AGENTS [Concomitant]
  6. ASPIRIN [Concomitant]
  7. POTASSIUM [Concomitant]

REACTIONS (11)
  - Malaise [None]
  - Confusional state [None]
  - Dyspnoea [None]
  - Pyrexia [None]
  - Staphylococcal sepsis [None]
  - Pneumonia [None]
  - Decubitus ulcer [None]
  - Acute respiratory failure [None]
  - Urinary tract infection [None]
  - Pseudomonas test positive [None]
  - Chronic obstructive pulmonary disease [None]
